FAERS Safety Report 21423110 (Version 2)
Quarter: 2022Q4

REPORT INFORMATION
  Report Type: Spontaneous
  Country: US (occurrence: US)
  Receive Date: 20221007
  Receipt Date: 20221108
  Transmission Date: 20230112
  Serious: No
  Sender: FDA-Public Use
  Company Number: US-PFIZER INC-202201204659

PATIENT
  Age: 70 Year
  Sex: Female

DRUGS (10)
  1. PAXLOVID [Suspect]
     Active Substance: NIRMATRELVIR\RITONAVIR
     Indication: COVID-19 treatment
     Dosage: UNK
     Dates: start: 20220819, end: 20220820
  2. ATORVASTATIN [Suspect]
     Active Substance: ATORVASTATIN
     Dosage: 10 MG
     Dates: start: 20211202, end: 202210
  3. MELATONIN [Concomitant]
     Active Substance: MELATONIN
     Dosage: UNK
     Dates: start: 202104, end: 202210
  4. PAPAYA ENZYMES [Concomitant]
     Dosage: UNK
     Dates: start: 202104, end: 202210
  5. ALEVE [Concomitant]
     Active Substance: NAPROXEN SODIUM
     Dosage: UNK
     Dates: start: 202004, end: 202210
  6. FISH OIL [Concomitant]
     Active Substance: FISH OIL
     Dosage: UNK
     Dates: start: 202104, end: 202210
  7. BRAIN BOOSTER [Concomitant]
     Dosage: UNK
     Dates: start: 202205, end: 202210
  8. HEAL N SOOTHE [Concomitant]
     Dosage: UNK
     Dates: start: 202204, end: 202210
  9. VITAMIN D3 [Concomitant]
     Active Substance: CHOLECALCIFEROL
     Dosage: UNK
     Dates: start: 202004, end: 202210
  10. ALLERGY RELIEF [ALBIZIA LEBBECK BARK;PHYLLANTHUS EMBLICA FRUIT;PIPER L [Concomitant]
     Dosage: UNK
     Dates: start: 202104, end: 202210

REACTIONS (5)
  - Nightmare [Recovered/Resolved]
  - Body temperature increased [Recovered/Resolved]
  - Blood pressure increased [Recovered/Resolved]
  - Heart rate increased [Recovered/Resolved]
  - Incorrect product administration duration [Unknown]

NARRATIVE: CASE EVENT DATE: 20220819
